FAERS Safety Report 25971213 (Version 1)
Quarter: 2025Q4

REPORT INFORMATION
  Report Type: Spontaneous
  Country: GB (occurrence: GB)
  Receive Date: 20251028
  Receipt Date: 20251028
  Transmission Date: 20260118
  Serious: Yes (Disabling)
  Sender: NOVO NORDISK
  Company Number: None

PATIENT
  Age: 32 Year
  Sex: Male
  Weight: 90 kg

DRUGS (3)
  1. WEGOVY [Suspect]
     Active Substance: SEMAGLUTIDE
     Indication: Weight control
     Dosage: UNK
     Dates: start: 20240201, end: 20250731
  2. MIRTAZAPINE [Concomitant]
     Active Substance: MIRTAZAPINE
     Indication: Major depression
     Dosage: UNK
     Dates: start: 20180301
  3. PREGABALIN [Concomitant]
     Active Substance: PREGABALIN
     Indication: Neuralgia
     Dosage: UNK
     Dates: start: 20200505

REACTIONS (4)
  - Lethargy [Recovered/Resolved]
  - Gastrointestinal motility disorder [Recovered/Resolved]
  - Gastrointestinal pain [Recovered/Resolved]
  - Vomiting [Recovered/Resolved]

NARRATIVE: CASE EVENT DATE: 20240601
